FAERS Safety Report 9536550 (Version 1)
Quarter: 2013Q1

REPORT INFORMATION
  Report Type: Spontaneous
  Country: US (occurrence: None)
  Receive Date: 20130329
  Receipt Date: 20130329
  Transmission Date: 20140127
  Serious: No
  Sender: FDA-Public Use
  Company Number: AUR-APL-2012-01410

PATIENT
  Age: 51 Year
  Sex: Female
  Weight: 68.04 kg

DRUGS (2)
  1. SERTRALINE [Suspect]
     Indication: ANXIETY DISORDER
     Dosage: (25 MG), ORAL
     Route: 048
     Dates: start: 201105, end: 20120220
  2. SERTRALINE [Suspect]
     Indication: OBSESSIVE-COMPULSIVE DISORDER
     Dosage: (25 MG), ORAL
     Route: 048
     Dates: start: 201105, end: 20120220

REACTIONS (3)
  - Anxiety [None]
  - Headache [None]
  - Nausea [None]
